FAERS Safety Report 7911572-4 (Version None)
Quarter: 2011Q4

REPORT INFORMATION
  Report Type: 
  Country: None (occurrence: None)
  Receive Date: 20111109
  Receipt Date: 20111103
  Transmission Date: 20120403
  Serious: Yes (Other)
  Sender: FDA-Public Use
  Company Number: AUR-APL-2011-05502

PATIENT
  Age: 61 Year
  Sex: Female
  Weight: 73.02 kg

DRUGS (13)
  1. ELAVIL [Concomitant]
  2. PROGESTERONE [Concomitant]
  3. VENLAFAXINE [Suspect]
     Indication: DEPRESSION
     Dosage: (150 MG, 1 D), ORAL
     Route: 048
     Dates: start: 20110801, end: 20110101
  4. VENLAFAXINE [Suspect]
     Indication: INSOMNIA
     Dosage: (150 MG, 1 D), ORAL
     Route: 048
     Dates: start: 20110801, end: 20110101
  5. EFFEXOR XR [Suspect]
     Indication: INSOMNIA
     Dosage: (150 MG, 1 D), ORAL  (75 MG, 1 D), ORAL  (150 MG, 1 D), ORAL
     Route: 048
     Dates: start: 20040101, end: 20110801
  6. EFFEXOR XR [Suspect]
     Indication: DEPRESSION
     Dosage: (150 MG, 1 D), ORAL  (75 MG, 1 D), ORAL  (150 MG, 1 D), ORAL
     Route: 048
     Dates: start: 20040101, end: 20110801
  7. EFFEXOR XR [Suspect]
     Indication: INSOMNIA
     Dosage: (150 MG, 1 D), ORAL  (75 MG, 1 D), ORAL  (150 MG, 1 D), ORAL
     Route: 048
     Dates: start: 20110101, end: 20110101
  8. EFFEXOR XR [Suspect]
     Indication: DEPRESSION
     Dosage: (150 MG, 1 D), ORAL  (75 MG, 1 D), ORAL  (150 MG, 1 D), ORAL
     Route: 048
     Dates: start: 20110101, end: 20110101
  9. CALCIUM CARBONATE [Concomitant]
  10. GLUCOSAMINE HCL (GLUCOSAMINE) [Concomitant]
  11. VITAMIN D [Concomitant]
  12. MULTIVITAMIN [Concomitant]
  13. BORON (BORON) [Concomitant]

REACTIONS (10)
  - VISION BLURRED [None]
  - HYPOAESTHESIA [None]
  - COORDINATION ABNORMAL [None]
  - BALANCE DISORDER [None]
  - VOMITING [None]
  - TREMOR [None]
  - PRODUCT SUBSTITUTION ISSUE [None]
  - NERVOUSNESS [None]
  - SPEECH DISORDER [None]
  - MENINGIOMA [None]
